FAERS Safety Report 5137189-5 (Version None)
Quarter: 2006Q4

REPORT INFORMATION
  Report Type: 
  Country: None (occurrence: None)
  Receive Date: 20061030
  Receipt Date: 20050912
  Transmission Date: 20070319
  Serious: No
  Sender: FDA-Public Use
  Company Number: US-GLAXOSMITHKLINE-A0573862A

PATIENT
  Age: 79 Year
  Sex: Male

DRUGS (7)
  1. ADVAIR HFA [Suspect]
     Indication: ASTHMA
     Route: 055
  2. ALBUTEROL [Concomitant]
  3. SINGULAIR [Concomitant]
  4. HYDROCODONE [Concomitant]
  5. LIPITOR [Concomitant]
  6. NAPROXEN [Concomitant]
  7. FLOMAX [Concomitant]

REACTIONS (4)
  - DYSPHAGIA [None]
  - EATING DISORDER [None]
  - ORAL DISCOMFORT [None]
  - ORAL PAIN [None]
